FAERS Safety Report 12172482 (Version 2)
Quarter: 2016Q2

REPORT INFORMATION
  Report Type: Spontaneous
  Country: DE (occurrence: DE)
  Receive Date: 20160311
  Receipt Date: 20160411
  Transmission Date: 20160815
  Serious: Yes (Life-Threatening)
  Sender: FDA-Public Use
  Company Number: DE-B.I. PHARMACEUTICALS,INC./RIDGEFIELD-2016-BI-10547DE

PATIENT
  Age: 81 Year
  Sex: Female
  Weight: 67 kg

DRUGS (3)
  1. VIANI [Concomitant]
     Active Substance: FLUTICASONE PROPIONATE\SALMETEROL XINAFOATE
     Indication: ASTHMA
     Dosage: 2 PUF
     Route: 048
     Dates: start: 20151110
  2. BERODUAL [Concomitant]
     Active Substance: FENOTEROL HYDROBROMIDE\IPRATROPIUM BROMIDE
     Indication: ASTHMA
     Dosage: FORMULATION: SPRAY; STRENGTH: 20 MCG/50 MCG
     Route: 048
     Dates: start: 2015
  3. SPIRIVA [Suspect]
     Active Substance: TIOTROPIUM BROMIDE MONOHYDRATE
     Indication: ASTHMA
     Dosage: 2 PUF
     Route: 055
     Dates: start: 20151110, end: 20160101

REACTIONS (5)
  - Speech disorder [Recovered/Resolved]
  - Dysphagia [Recovered/Resolved]
  - Mastication disorder [Recovered/Resolved]
  - Oropharyngeal pain [Recovered/Resolved]
  - Myasthenia gravis [Unknown]

NARRATIVE: CASE EVENT DATE: 20151222
